FAERS Safety Report 13937468 (Version 1)
Quarter: 2017Q3

REPORT INFORMATION
  Report Type: Spontaneous
  Country: FR (occurrence: FR)
  Receive Date: 20170905
  Receipt Date: 20170905
  Transmission Date: 20171127
  Serious: Yes (Hospitalization)
  Sender: FDA-Public Use
  Company Number: FR-BAYER-2017-163286

PATIENT
  Age: 29 Year
  Sex: Male

DRUGS (7)
  1. ESKAZOLE [Suspect]
     Active Substance: ALBENDAZOLE
     Indication: SCHISTOSOMIASIS
     Dosage: 400 MG, QD
     Route: 048
     Dates: start: 20170731, end: 20170802
  2. RIFATER [Concomitant]
     Active Substance: ISONIAZID\PYRAZINAMIDE\RIFAMPIN
     Indication: PULMONARY TUBERCULOSIS
     Dosage: UNK
     Route: 048
     Dates: start: 20170627
  3. BILTRICIDE [Suspect]
     Active Substance: PRAZIQUANTEL
     Indication: SCHISTOSOMIASIS
     Dosage: 2 G, ONCE
     Route: 048
     Dates: start: 20170731, end: 20170731
  4. STROMECTOL [Suspect]
     Active Substance: IVERMECTIN
     Indication: SCHISTOSOMIASIS
     Dosage: 9 MG, ONCE
     Route: 048
     Dates: start: 20170731, end: 20170731
  5. ETHAMBUTOL DIHYDROCHLORIDE [Concomitant]
     Active Substance: ETHAMBUTOL HYDROCHLORIDE
     Indication: PULMONARY TUBERCULOSIS
     Dosage: UNK
     Route: 048
     Dates: start: 20170627
  6. BILTRICIDE [Suspect]
     Active Substance: PRAZIQUANTEL
     Indication: SCHISTOSOMIASIS
     Dosage: 2 G, ONCE
     Route: 048
     Dates: start: 20170706, end: 20170706
  7. DOLIPRANE [Concomitant]
     Active Substance: ACETAMINOPHEN
     Indication: PRODUCT USED FOR UNKNOWN INDICATION
     Dosage: UNK

REACTIONS (3)
  - Eosinophilia [Recovering/Resolving]
  - Eosinophilia [Recovering/Resolving]
  - Condition aggravated [Recovering/Resolving]

NARRATIVE: CASE EVENT DATE: 20170708
